FAERS Safety Report 23919572 (Version 1)
Quarter: 2024Q2

REPORT INFORMATION
  Report Type: Spontaneous
  Country: US (occurrence: US)
  Receive Date: 20240530
  Receipt Date: 20240530
  Transmission Date: 20240716
  Serious: No
  Sender: FDA-Public Use
  Company Number: US-009507513-2405USA008700

PATIENT
  Age: 64 Year
  Sex: Female

DRUGS (3)
  1. KEYTRUDA [Suspect]
     Active Substance: PEMBROLIZUMAB
     Indication: Breast cancer
     Dosage: UNK, Q3W
     Route: 042
     Dates: start: 20240517
  2. HYDROCORTISONE [Concomitant]
     Active Substance: HYDROCORTISONE
  3. ACRIVASTINE [Concomitant]
     Active Substance: ACRIVASTINE

REACTIONS (2)
  - Pruritus [Recovering/Resolving]
  - Medical device site pruritus [Recovering/Resolving]

NARRATIVE: CASE EVENT DATE: 20240517
